FAERS Safety Report 13656468 (Version 1)
Quarter: 2017Q2

REPORT INFORMATION
  Report Type: Spontaneous
  Country: US (occurrence: US)
  Receive Date: 20170615
  Receipt Date: 20170615
  Transmission Date: 20170830
  Serious: No
  Sender: FDA-Public Use
  Company Number: US-BAXALTA-2017BLT005659

PATIENT
  Sex: Female

DRUGS (1)
  1. CUVITRU [Suspect]
     Active Substance: HUMAN IMMUNOGLOBULIN G
     Indication: PRODUCT USED FOR UNKNOWN INDICATION
     Dosage: 16 G, EVERY 2 WK, FIRST DOSE
     Route: 065

REACTIONS (4)
  - Influenza like illness [Unknown]
  - Nausea [Unknown]
  - Infusion site swelling [Recovering/Resolving]
  - Fatigue [Unknown]
